FAERS Safety Report 10977486 (Version 1)
Quarter: 2015Q1

REPORT INFORMATION
  Report Type: Spontaneous
  Country: US (occurrence: None)
  Receive Date: 20150330
  Receipt Date: 20150330
  Transmission Date: 20150721
  Serious: Yes (Other)
  Sender: FDA-Public Use
  Company Number: ADE15-019

PATIENT
  Age: 80 Year
  Sex: Male
  Weight: 75 kg

DRUGS (1)
  1. HEPARIN SODIUM INJECTION, MDV, 10ML, 1,000UNITS/ML, 25X-SAGENT [Suspect]
     Active Substance: HEPARIN SODIUM
     Indication: CORONARY ARTERY BYPASS
     Route: 042
     Dates: start: 20150224, end: 20150224

REACTIONS (2)
  - Activated partial thromboplastin time shortened [None]
  - Prescribed overdose [None]

NARRATIVE: CASE EVENT DATE: 20150224
